FAERS Safety Report 5207838-1 (Version None)
Quarter: 2007Q1

REPORT INFORMATION
  Report Type: 
  Country: None (occurrence: None)
  Receive Date: 20070112
  Receipt Date: 20070103
  Transmission Date: 20070707
  Serious: Yes (Other)
  Sender: FDA-Public Use
  Company Number: GB-PFIZER INC-2007001677

PATIENT
  Age: 54 Year
  Sex: Male

DRUGS (46)
  1. FLUCONAZOLE [Suspect]
     Indication: DRUG USE FOR UNKNOWN INDICATION
     Route: 042
  2. FRAGMIN [Suspect]
  3. HYDROCORTISONE SODIUM SUCCINATE [Suspect]
  4. SALBUTAMOL [Suspect]
  5. POTASSIUM CHLORIDE [Suspect]
  6. PARACETAMOL [Suspect]
  7. SODIUM CHLORIDE [Suspect]
     Route: 042
  8. AMOXICILLIN [Suspect]
     Route: 042
  9. INSULIN HUMAN [Suspect]
     Route: 042
  10. ALFENTANIL [Suspect]
  11. TRICLOSAN [Suspect]
  12. MUPIROCIN CALCIUM [Suspect]
  13. CALCIUM CHLORIDE [Suspect]
  14. CALCIUM GLUCONATE [Suspect]
     Route: 042
  15. CEFTRIAXONE [Suspect]
     Route: 042
  16. ENOXAPARIN SODIUM [Suspect]
     Route: 058
  17. DOBUTAMINE [Suspect]
  18. FRUSEMIDE [Suspect]
     Route: 042
  19. LACTULOSE [Suspect]
  20. LANSOPRAZOLE [Suspect]
  21. LORAZEPAM [Suspect]
  22. MAGNESIUM [Suspect]
  23. NORADRENALINE [Suspect]
  24. OMEPRAZOLE [Suspect]
     Route: 042
  25. CHLORPHENIRAMINE MALEATE [Suspect]
     Route: 042
  26. POTASSIUM PHOSPHATES [Suspect]
  27. PROPOFOL [Suspect]
  28. POTASSIUM BICARBONATE [Suspect]
  29. SULPHADIAZINE [Suspect]
     Route: 061
  30. SIMVASTATIN [Suspect]
  31. SODIUM BICARBONATE [Suspect]
     Route: 042
  32. THIAMINE [Suspect]
     Route: 048
  33. TINZAPARIN SODIUM [Suspect]
  34. VITAMIN K [Suspect]
  35. AMOXICILLIN [Concomitant]
     Route: 048
     Dates: start: 20060913
  36. ASPIRIN [Concomitant]
     Route: 048
  37. ATROVENT [Concomitant]
  38. CIPROFLOXACIN [Concomitant]
     Route: 042
  39. AMOXICILLIN + CLAVULANATE POTASSIUM [Concomitant]
  40. ERYTHROMYCIN [Concomitant]
  41. METOCLOPRAMIDE [Concomitant]
     Route: 042
  42. MIDODRINE [Concomitant]
     Route: 048
  43. PANTOPRAZOLE SODIUM [Concomitant]
     Route: 042
  44. TAZOCIN [Concomitant]
  45. VANCOMYCIN [Concomitant]
     Route: 042
  46. ZOPICLONE [Concomitant]
     Route: 048

REACTIONS (1)
  - TOXIC EPIDERMAL NECROLYSIS [None]
